FAERS Safety Report 13586693 (Version 1)
Quarter: 2017Q2

REPORT INFORMATION
  Report Type: Spontaneous
  Country: US (occurrence: US)
  Receive Date: 20170525
  Receipt Date: 20170525
  Transmission Date: 20170830
  Serious: Yes (Other)
  Sender: FDA-Public Use
  Company Number: None

PATIENT
  Age: 51 Year
  Weight: 136.2 kg

DRUGS (9)
  1. FUROSEMIDE 40MG TABLET [Suspect]
     Active Substance: FUROSEMIDE SODIUM
     Indication: PULMONARY OEDEMA
     Dosage: ?          QUANTITY:Z PUNS, OR 7 IBESPODH. 61;?
     Route: 048
     Dates: start: 20170414, end: 20170516
  2. FUROSEMIDE 40MG TABLET [Suspect]
     Active Substance: FUROSEMIDE SODIUM
     Indication: CARDIAC FAILURE
     Dosage: ?          QUANTITY:Z PUNS, OR 7 IBESPODH. 61;?
     Route: 048
     Dates: start: 20170414, end: 20170516
  3. MULTIVITAMIN CENTRUM [Concomitant]
  4. LASIX GENERIC [Concomitant]
  5. FUROSEMIDE 40MG TABLET [Suspect]
     Active Substance: FUROSEMIDE SODIUM
     Indication: OEDEMA PERIPHERAL
     Dosage: ?          QUANTITY:Z PUNS, OR 7 IBESPODH. 61;?
     Route: 048
     Dates: start: 20170414, end: 20170516
  6. LASINAPRILL [Concomitant]
  7. COFFEE [Concomitant]
     Active Substance: ARABICA COFFEE BEAN\COFFEE BEAN
  8. ASPRIN [Concomitant]
     Active Substance: ASPIRIN
  9. ORANGE JUICE [Concomitant]
     Active Substance: ORANGE JUICE

REACTIONS (10)
  - Abdominal discomfort [None]
  - Vomiting [None]
  - Condition aggravated [None]
  - Product substitution issue [None]
  - Cough [None]
  - Gastric dilatation [None]
  - Hyperhidrosis [None]
  - Urine output decreased [None]
  - Peripheral swelling [None]
  - Loss of consciousness [None]
